FAERS Safety Report 8546743-X (Version None)
Quarter: 2012Q3

REPORT INFORMATION
  Report Type: 
  Country: None (occurrence: None)
  Receive Date: 20120727
  Receipt Date: 20120202
  Transmission Date: 20120928
  Serious: No
  Sender: FDA-Public Use
  Company Number: US-ASTRAZENECA-2012SE07291

PATIENT
  Sex: Male
  Weight: 113.4 kg

DRUGS (5)
  1. SEROQUEL [Suspect]
     Indication: SLEEP DISORDER
     Route: 048
  2. SEROQUEL [Suspect]
     Route: 048
  3. BICODIN [Concomitant]
     Indication: BACK PAIN
  4. KLONOPIN [Concomitant]
     Indication: ANXIETY
  5. IBUDPROFEN [Concomitant]

REACTIONS (9)
  - BLOOD TESTOSTERONE DECREASED [None]
  - ABNORMAL BEHAVIOUR [None]
  - ASTHENIA [None]
  - OFF LABEL USE [None]
  - LIBIDO DECREASED [None]
  - ROAD TRAFFIC ACCIDENT [None]
  - INSOMNIA [None]
  - LIMB INJURY [None]
  - DRUG DOSE OMISSION [None]
